FAERS Safety Report 8102557-6 (Version None)
Quarter: 2012Q1

REPORT INFORMATION
  Report Type: 
  Country: None (occurrence: None)
  Receive Date: 20120201
  Receipt Date: 20120117
  Transmission Date: 20120608
  Serious: Yes (Hospitalization, Other)
  Sender: FDA-Public Use
  Company Number: CA-JNJFOC-20120112598

PATIENT
  Sex: Male
  Weight: 48.54 kg

DRUGS (1)
  1. REMICADE [Suspect]
     Indication: CROHN'S DISEASE
     Route: 042
     Dates: start: 20060101

REACTIONS (4)
  - WEIGHT DECREASED [None]
  - FEMUR FRACTURE [None]
  - TRANSFUSION [None]
  - HIP FRACTURE [None]
